FAERS Safety Report 4791847-0 (Version None)
Quarter: 2005Q4

REPORT INFORMATION
  Report Type: 
  Country: None (occurrence: None)
  Receive Date: 20051007
  Receipt Date: 20050912
  Transmission Date: 20060501
  Serious: Yes (Hospitalization)
  Sender: FDA-Public Use
  Company Number: JP-JNJFOC-20050902982

PATIENT
  Age: 66 Year
  Sex: Male
  Weight: 48 kg

DRUGS (6)
  1. RISPERDAL [Suspect]
     Indication: DRUG USE FOR UNKNOWN INDICATION
     Route: 048
  2. ZOLPIDEM TARTRATE [Concomitant]
     Route: 048
  3. BROTIZOLAM [Concomitant]
     Route: 048
  4. TRAZODONE HCL [Concomitant]
     Route: 048
  5. FLUVOXAMINE MALEATE [Concomitant]
     Route: 048
  6. CLOXAZOLAM [Concomitant]

REACTIONS (1)
  - SUPERIOR VENA CAVAL OCCLUSION [None]
